FAERS Safety Report 5248431-4 (Version None)
Quarter: 2007Q1

REPORT INFORMATION
  Report Type: 
  Country: None (occurrence: None)
  Receive Date: 20070222
  Receipt Date: 20070207
  Transmission Date: 20070707
  Serious: Yes (Death)
  Sender: FDA-Public Use
  Company Number: US019275

PATIENT
  Age: 12 Month
  Sex: Female
  Weight: 10 kg

DRUGS (1)
  1. ACTIQ [Suspect]
     Dosage: UNKNOWN DOSE
     Dates: start: 20060902, end: 20060902

REACTIONS (12)
  - ABDOMINAL DISTENSION [None]
  - ACCIDENTAL DEATH [None]
  - ACCIDENTAL DRUG INTAKE BY CHILD [None]
  - BLOOD GLUCOSE INCREASED [None]
  - CARDIAC ARREST [None]
  - DRUG TOXICITY [None]
  - GINGIVAL DISCOLOURATION [None]
  - LOSS OF CONSCIOUSNESS [None]
  - PERIPHERAL COLDNESS [None]
  - TONGUE DISCOLOURATION [None]
  - VASCULAR ACCESS COMPLICATION [None]
  - VOMITING [None]
